FAERS Safety Report 6453904-2 (Version None)
Quarter: 2009Q4

REPORT INFORMATION
  Report Type: 
  Country: None (occurrence: None)
  Receive Date: 20091117
  Receipt Date: 20091111
  Transmission Date: 20100525
  Serious: Yes (Other)
  Sender: FDA-Public Use
  Company Number: GLIP20090001

PATIENT
  Age: 66 Year
  Sex: Female

DRUGS (1)
  1. GLIPIZIDE [Suspect]
     Indication: DIABETES MELLITUS

REACTIONS (2)
  - LEUKOCYTOCLASTIC VASCULITIS [None]
  - RASH PRURITIC [None]
